FAERS Safety Report 9541762 (Version 2)
Quarter: 2013Q3

REPORT INFORMATION
  Report Type: Spontaneous
  Country: US (occurrence: US)
  Receive Date: 20130923
  Receipt Date: 20130923
  Transmission Date: 20140515
  Serious: Yes (Hospitalization, Disabling, Other)
  Sender: FDA-Public Use
  Company Number: US-009507513-1108USA00318

PATIENT
  Sex: Female
  Weight: 96.16 kg

DRUGS (4)
  1. FOSAMAX [Suspect]
     Indication: OSTEOPOROSIS
     Dosage: 70 MG, QW
     Route: 048
     Dates: start: 200204, end: 20060307
  2. SYNTHROID [Concomitant]
     Indication: HYPOTHYROIDISM
     Dates: start: 1998
  3. BONIVA [Suspect]
     Indication: OSTEOPENIA
     Dosage: 150 MG, QM
     Route: 048
     Dates: start: 20060307
  4. PREMARIN [Concomitant]
     Dosage: 0.625 MG, QD
     Route: 048
     Dates: start: 1979, end: 200512

REACTIONS (46)
  - Femur fracture [Unknown]
  - Bronchitis [Unknown]
  - Pulmonary embolism [Unknown]
  - Deep vein thrombosis [Unknown]
  - Chest pain [Not Recovered/Not Resolved]
  - Open reduction of fracture [Unknown]
  - Ankle fracture [Unknown]
  - Foot fracture [Unknown]
  - Deafness neurosensory [Unknown]
  - Malaise [Unknown]
  - Femur fracture [Recovered/Resolved]
  - Nausea [Unknown]
  - Viral infection [Unknown]
  - Chest pain [Unknown]
  - Hiatus hernia [Unknown]
  - Left ventricular hypertrophy [Unknown]
  - Mitral valve incompetence [Unknown]
  - Tricuspid valve incompetence [Unknown]
  - Pulmonary valve incompetence [Unknown]
  - Hypertension [Unknown]
  - Libido decreased [Unknown]
  - Osteopenia [Unknown]
  - Osteoarthritis [Unknown]
  - Osteoarthritis [Unknown]
  - Tinnitus [Unknown]
  - Hyperlipidaemia [Unknown]
  - Stress urinary incontinence [Unknown]
  - Pharyngitis [Unknown]
  - Dysphagia [Unknown]
  - Oropharyngeal pain [Unknown]
  - Rotator cuff syndrome [Unknown]
  - Tricuspid valve incompetence [Unknown]
  - Dyslipidaemia [Unknown]
  - Ventricular extrasystoles [Recovered/Resolved]
  - Anxiety disorder [Unknown]
  - Pulmonary granuloma [Not Recovered/Not Resolved]
  - Sinus congestion [Unknown]
  - Rhinitis allergic [Unknown]
  - Memory impairment [Unknown]
  - Anaemia [Unknown]
  - Asthma [Unknown]
  - Diarrhoea [Unknown]
  - Dizziness [Unknown]
  - Headache [Unknown]
  - Vertigo [Not Recovered/Not Resolved]
  - Dyspepsia [Unknown]
